FAERS Safety Report 5305576-8 (Version None)
Quarter: 2007Q2

REPORT INFORMATION
  Report Type: 
  Country: None (occurrence: None)
  Receive Date: 20070416
  Receipt Date: 20070402
  Transmission Date: 20071010
  Serious: Yes (Hospitalization)
  Sender: FDA-Public Use
  Company Number: VNL_0499_2007

PATIENT
  Sex: Female

DRUGS (1)
  1. APOKYN [Suspect]
     Dosage: 0.4 ML UNK SC
     Route: 058
     Dates: start: 20070111

REACTIONS (2)
  - FALL [None]
  - LOWER LIMB FRACTURE [None]
